FAERS Safety Report 5242728-X (Version None)
Quarter: 2007Q1

REPORT INFORMATION
  Report Type: 
  Country: None (occurrence: None)
  Receive Date: 20070221
  Receipt Date: 20070219
  Transmission Date: 20070707
  Serious: Yes (Hospitalization)
  Sender: FDA-Public Use
  Company Number: FR-GLAXOSMITHKLINE-B0458894A

PATIENT
  Age: 53 Year
  Sex: Male
  Weight: 65 kg

DRUGS (3)
  1. AMOXICILLIN TRIHYDRATE [Suspect]
     Indication: TOOTHACHE
     Route: 048
     Dates: start: 20061229, end: 20070105
  2. INIPOMP [Suspect]
     Route: 048
     Dates: end: 20070105
  3. DETENSIEL [Concomitant]
     Indication: HYPERTENSION
     Route: 065
     Dates: start: 20010101

REACTIONS (2)
  - NEPHROPATHY [None]
  - RENAL FAILURE ACUTE [None]
